FAERS Safety Report 18502347 (Version 1)
Quarter: 2020Q4

REPORT INFORMATION
  Report Type: Other
  Country: US (occurrence: US)
  Receive Date: 20201113
  Receipt Date: 20201113
  Transmission Date: 20210114
  Serious: No
  Sender: FDA-Public Use
  Company Number: US-LEADIANT BIOSCIENCES INC-2020STPI000309

PATIENT
  Sex: Male

DRUGS (7)
  1. POTASSIUM CHLORIDE. [Concomitant]
     Active Substance: POTASSIUM CHLORIDE
  2. CALCITRIOL. [Concomitant]
     Active Substance: CALCITRIOL
  3. K PHOS NEUTRAL [Concomitant]
     Active Substance: POTASSIUM PHOSPHATE, MONOBASIC\SODIUM PHOSPHATE, DIBASIC, ANHYDROUS\SODIUM PHOSPHATE, MONOBASIC, MONOHYDRATE
  4. PROCYSBI [Concomitant]
     Active Substance: CYSTEAMINE BITARTRATE
  5. SODIUM CITRATE. [Concomitant]
     Active Substance: SODIUM CITRATE
  6. CYSTARAN [Suspect]
     Active Substance: CYSTEAMINE HYDROCHLORIDE
     Indication: CYSTINOSIS
     Dosage: 1 GTT DROP IN BOTH EYES EVERY HOUR WHILE AWAKE
     Route: 047
     Dates: start: 20191107
  7. IRON UP [Concomitant]

REACTIONS (2)
  - Eye irritation [Unknown]
  - Ocular hyperaemia [None]
